FAERS Safety Report 25239550 (Version 1)
Quarter: 2025Q2

REPORT INFORMATION
  Report Type: Spontaneous
  Country: US (occurrence: None)
  Receive Date: 20250425
  Receipt Date: 20250425
  Transmission Date: 20250717
  Serious: Yes (Life-Threatening, Hospitalization)
  Sender: FDA-CTU
  Company Number: None

PATIENT
  Age: 39 Year
  Sex: Female
  Weight: 57.2 kg

DRUGS (1)
  1. FERUMOXYTOL [Suspect]
     Active Substance: FERUMOXYTOL
     Indication: Haemorrhage
     Route: 042
     Dates: start: 20250414, end: 20250414

REACTIONS (7)
  - Infusion related reaction [None]
  - Head discomfort [None]
  - Vision blurred [None]
  - Cerebral palsy [None]
  - Dizziness [None]
  - Pain [None]
  - Anaphylactic reaction [None]

NARRATIVE: CASE EVENT DATE: 20250414
